FAERS Safety Report 6557915 (Version 2)
Quarter: 2015Q3

REPORT INFORMATION
  Report Type: Spontaneous
  Country: GB (occurrence: GB)
  Receive Date: 20080221
  Receipt Date: 20150729
  Transmission Date: 20151125
  Serious: Yes (Other)
  Sender: FDA-Public Use
  Company Number: GB-AMGEN-UK264756

PATIENT
  Age: 70 Year
  Sex: Female

DRUGS (2)
  1. UNSPECIFIED ANTINEOPLASTIC AGENT [Concomitant]
  2. NEUPOGEN [Suspect]
     Active Substance: FILGRASTIM
     Indication: CHEMOTHERAPY

REACTIONS (1)
  - Chondrocalcinosis pyrophosphate [Unknown]
